FAERS Safety Report 16827535 (Version 1)
Quarter: 2019Q3

REPORT INFORMATION
  Report Type: Spontaneous
  Country: US (occurrence: US)
  Receive Date: 20190919
  Receipt Date: 20190919
  Transmission Date: 20191005
  Serious: No
  Sender: FDA-Public Use
  Company Number: US-PFIZER INC-2019399873

PATIENT
  Age: 59 Year
  Sex: Female
  Weight: 54.43 kg

DRUGS (2)
  1. DEPO-ESTRADIOL [Suspect]
     Active Substance: ESTRADIOL CYPIONATE
     Dosage: 0.2 ML, UNK (5MG/ML 0.2ML(1MG) 1-3 INJECTIONS EVERY 2 MONTHS)
     Dates: start: 2005, end: 2017
  2. DEPO-ESTRADIOL [Suspect]
     Active Substance: ESTRADIOL CYPIONATE
     Indication: HORMONE LEVEL ABNORMAL
     Dosage: 5 ML, UNK [ INITIALLY STARTED ON 1 VIAL OF 5ML INJECTION WHICH WAS 1MG]

REACTIONS (3)
  - Insomnia [Not Recovered/Not Resolved]
  - Hyperhidrosis [Unknown]
  - Hot flush [Unknown]

NARRATIVE: CASE EVENT DATE: 201904
